FAERS Safety Report 16130276 (Version 2)
Quarter: 2019Q2

REPORT INFORMATION
  Report Type: Report from Study
  Country: US (occurrence: US)
  Receive Date: 20190328
  Receipt Date: 20190402
  Transmission Date: 20190711
  Serious: Yes (Hospitalization, Other)
  Sender: FDA-Public Use
  Company Number: US-GILEAD-2018-0344628

PATIENT
  Age: 70 Year
  Sex: Male
  Weight: 88.8 kg

DRUGS (33)
  1. ALLOPURINOL. [Concomitant]
     Active Substance: ALLOPURINOL
  2. MAGNESIUM SULFATE. [Concomitant]
     Active Substance: MAGNESIUM SULFATE
  3. POTASSIUM CHLORIDE. [Concomitant]
     Active Substance: POTASSIUM CHLORIDE
  4. CYCLOPHOSPHAMIDE. [Suspect]
     Active Substance: CYCLOPHOSPHAMIDE
     Indication: BONE MARROW CONDITIONING REGIMEN
     Dosage: 500 MG/M2, QD
     Route: 042
     Dates: start: 20170901, end: 20170903
  5. FAMOTIDINE. [Concomitant]
     Active Substance: FAMOTIDINE
  6. POTASSIUM PHOSPHATE [POTASSIUM PHOSPHATE DIBASIC] [Concomitant]
  7. QUETIAPINE. [Concomitant]
     Active Substance: QUETIAPINE
  8. MESNA. [Suspect]
     Active Substance: MESNA
     Indication: PROPHYLAXIS
     Dosage: 125 MG/M2, BID
     Route: 042
     Dates: start: 20170901, end: 20170903
  9. FUROSEMIDE. [Concomitant]
     Active Substance: FUROSEMIDE
  10. ACETAMINOPHEN. [Concomitant]
     Active Substance: ACETAMINOPHEN
  11. METOPROLOL. [Concomitant]
     Active Substance: METOPROLOL
  12. SULFAMETHOXAZOLE AND TRIMETHOPRIM [Concomitant]
     Active Substance: SULFAMETHOXAZOLE\TRIMETHOPRIM
  13. MULTIVITAMIN [VITAMINS NOS] [Concomitant]
  14. SENNA [SENNOSIDE A+B] [Concomitant]
  15. ACYCLOVIR [ACICLOVIR] [Concomitant]
     Active Substance: ACYCLOVIR
  16. DEXAMETHASONE. [Concomitant]
     Active Substance: DEXAMETHASONE
  17. LEVETIRACETAM. [Concomitant]
     Active Substance: LEVETIRACETAM
  18. FILGRASTIM [Concomitant]
     Active Substance: FILGRASTIM
  19. MAGNESIUM OXIDE. [Concomitant]
     Active Substance: MAGNESIUM OXIDE
  20. ATORVASTATIN [Concomitant]
     Active Substance: ATORVASTATIN
  21. CALCIUM GLUCONATE. [Concomitant]
     Active Substance: CALCIUM GLUCONATE
  22. CEFTAZIDIME. [Concomitant]
     Active Substance: CEFTAZIDIME
  23. FOLIC ACID. [Concomitant]
     Active Substance: FOLIC ACID
  24. THIAMINE. [Concomitant]
     Active Substance: THIAMINE
  25. AXICABTAGENE CILOLEUCEL [Suspect]
     Active Substance: AXICABTAGENE CILOLEUCEL
     Indication: NON-HODGKIN^S LYMPHOMA REFRACTORY
     Dosage: 68 ML, ONCE
     Route: 042
     Dates: start: 20170906, end: 20170906
  26. FLUDARABINE [Suspect]
     Active Substance: FLUDARABINE PHOSPHATE
     Indication: BONE MARROW CONDITIONING REGIMEN
     Dosage: 30 MG/M2, QD
     Route: 042
     Dates: start: 20170901, end: 20170903
  27. EZETIMIBE. [Concomitant]
     Active Substance: EZETIMIBE
  28. ATOVAQUONE. [Concomitant]
     Active Substance: ATOVAQUONE
  29. COSYNTROPIN. [Concomitant]
     Active Substance: COSYNTROPIN
  30. ASPIRIN (E.C.) [Concomitant]
     Active Substance: ASPIRIN
  31. ESOMEPRAZOLE MAGNESIUM. [Concomitant]
     Active Substance: ESOMEPRAZOLE MAGNESIUM
  32. IPRATROPIUM BROMIDE AND ALBUTEROL SULFATE [Concomitant]
     Active Substance: ALBUTEROL SULFATE\IPRATROPIUM BROMIDE
  33. MULTIVITAMINS [VITAMINS NOS] [Concomitant]
     Active Substance: VITAMINS

REACTIONS (3)
  - Confusional state [Recovered/Resolved]
  - Somnolence [Recovered/Resolved]
  - Pancreatitis [Unknown]

NARRATIVE: CASE EVENT DATE: 20170913
